FAERS Safety Report 14597735 (Version 1)
Quarter: 2018Q1

REPORT INFORMATION
  Report Type: Spontaneous
  Country: TW (occurrence: TW)
  Receive Date: 20180305
  Receipt Date: 20180305
  Transmission Date: 20180509
  Serious: Yes (Other)
  Sender: FDA-Public Use
  Company Number: TW-FRESENIUS KABI-FK201802538

PATIENT
  Sex: Male

DRUGS (4)
  1. CEFTAZIDIME. [Suspect]
     Active Substance: CEFTAZIDIME
     Indication: PRODUCT USED FOR UNKNOWN INDICATION
     Route: 065
  2. COLISTIN [Suspect]
     Active Substance: COLISTIN
     Indication: PRODUCT USED FOR UNKNOWN INDICATION
     Route: 065
  3. TIGECYCLINE (MANUFACTURER UNKNOWN) [Suspect]
     Active Substance: TIGECYCLINE
     Indication: PNEUMONIA
     Route: 042
  4. TIGECYCLINE (MANUFACTURER UNKNOWN) [Suspect]
     Active Substance: TIGECYCLINE
     Route: 042

REACTIONS (1)
  - Hypofibrinogenaemia [Recovered/Resolved]
